FAERS Safety Report 17634162 (Version 1)
Quarter: 2020Q2

REPORT INFORMATION
  Report Type: Spontaneous
  Country: KR (occurrence: KR)
  Receive Date: 20200406
  Receipt Date: 20200406
  Transmission Date: 20200713
  Serious: Yes (Hospitalization)
  Sender: FDA-Public Use
  Company Number: KR-BAYER-2020-055232

PATIENT
  Sex: Female

DRUGS (2)
  1. CIPROBAY 200/100 MG/ML [Suspect]
     Active Substance: CIPROFLOXACIN
     Dosage: UNK
     Dates: start: 202003, end: 202003
  2. CRAVIT [Suspect]
     Active Substance: LEVOFLOXACIN
     Dosage: UNK
     Dates: start: 202003, end: 202003

REACTIONS (10)
  - Adverse event [None]
  - Drug hypersensitivity [None]
  - Formication [None]
  - Nausea [None]
  - Hypertension [None]
  - Vomiting [None]
  - Muscle strain [None]
  - Pyrexia [None]
  - Thirst [None]
  - Infection [None]

NARRATIVE: CASE EVENT DATE: 202003
